FAERS Safety Report 6185949-4 (Version None)
Quarter: 2009Q2

REPORT INFORMATION
  Report Type: 
  Country: None (occurrence: None)
  Receive Date: 20090511
  Receipt Date: 20090430
  Transmission Date: 20091009
  Serious: Yes (Other)
  Sender: FDA-Public Use
  Company Number: GB-PFIZER INC-2009200818

PATIENT

DRUGS (8)
  1. FESOTERODINE [Suspect]
     Indication: HYPERTONIC BLADDER
     Dosage: 8 MG, 1X/DAY
     Route: 048
     Dates: start: 20090306, end: 20090420
  2. AMLODIPINE BESILATE [Concomitant]
     Dosage: UNK
     Route: 048
     Dates: start: 20081201
  3. BISOPROLOL [Concomitant]
     Dosage: UNK
     Route: 048
     Dates: start: 20050101
  4. GLICLAZIDE [Concomitant]
     Dosage: UNK
     Route: 048
     Dates: start: 20070101
  5. RANITIDINE [Concomitant]
     Dosage: UNK
     Route: 048
     Dates: start: 20081001
  6. PROCHLORPERAZINE [Concomitant]
     Dosage: UNK
     Route: 048
     Dates: start: 20080901
  7. METFORMIN HYDROCHLORIDE [Concomitant]
     Dosage: UNK
     Route: 048
     Dates: start: 20010101
  8. LOSARTAN [Concomitant]
     Dosage: UNK
     Route: 048
     Dates: start: 20030101

REACTIONS (1)
  - HYPERTENSION [None]
